FAERS Safety Report 23997063 (Version 1)
Quarter: 2024Q2

REPORT INFORMATION
  Report Type: Spontaneous
  Country: PL (occurrence: PL)
  Receive Date: 20240621
  Receipt Date: 20240621
  Transmission Date: 20240716
  Serious: Yes (Other)
  Sender: FDA-Public Use
  Company Number: PL-HALEON-2182066

PATIENT
  Age: 1 Month
  Sex: Female

DRUGS (4)
  1. ACETAMINOPHEN [Suspect]
     Active Substance: ACETAMINOPHEN
     Indication: Product used for unknown indication
     Dosage: 1ST DOSE, VACCINATION SITE: LEFT THIGH
     Route: 054
  2. SYNFLORIX [Suspect]
     Active Substance: PNEUMOCOCCAL VACCINE POLYVALENT
     Indication: Immunisation
     Dosage: 1ST DOSE, VACCINATION SITE: RIGHT THIGH; 0.5, DOSE UNIT UNKNOWNEXPDATE:20250531
     Route: 030
     Dates: start: 20230517, end: 20230517
  3. ROTATEQ [Suspect]
     Active Substance: HUMAN ROTAVIRUS A TYPE G1P7(5) STRAIN WI79 LIVE ANTIGEN\HUMAN ROTAVIRUS A TYPE G2P7(5) STRAIN SC2 LI
     Indication: Immunisation
     Dosage: 1 ST DOSEEXPDATE:20240131
     Route: 048
     Dates: start: 20230517, end: 20230517
  4. DIPHTHERIA AND TETANUS TOXOIDS AND ACELLULAR PERTUSSIS ADSORBED, INACT [Suspect]
     Active Substance: BORDETELLA PERTUSSIS FILAMENTOUS HEMAGGLUTININ ANTIGEN (FORMALDEHYDE INACTIVATED)\BORDETELLA PERTUSS
     Indication: Immunisation
     Dosage: DOSE: 0.5, DOSE UNIT UNKNOWN; 1ST DOSE, VACCINATION SITE: LEFT THIGHEXPDATE:20241130
     Route: 030
     Dates: start: 20230517, end: 20230517

REACTIONS (2)
  - Haematochezia [Unknown]
  - Vaccination site reaction [Unknown]

NARRATIVE: CASE EVENT DATE: 20230519
